FAERS Safety Report 9377062 (Version 4)
Quarter: 2013Q4

REPORT INFORMATION
  Report Type: Spontaneous
  Country: US (occurrence: US)
  Receive Date: 20130701
  Receipt Date: 20131008
  Transmission Date: 20140711
  Serious: Yes (Hospitalization, Other)
  Sender: FDA-Public Use
  Company Number: US-JNJFOC-20130614082

PATIENT
  Age: 62 Year
  Sex: Male
  Weight: 76.2 kg

DRUGS (16)
  1. ZYTIGA [Suspect]
     Indication: PROSTATE CANCER
     Dosage: 250 MG X 4
     Route: 048
     Dates: start: 20130610, end: 20130620
  2. LUPRON [Suspect]
     Indication: PRODUCT USED FOR UNKNOWN INDICATION
     Route: 065
     Dates: start: 20130304
  3. LUPRON [Suspect]
     Indication: PRODUCT USED FOR UNKNOWN INDICATION
     Route: 065
     Dates: start: 201201
  4. ZOMETA [Suspect]
     Indication: PRODUCT USED FOR UNKNOWN INDICATION
     Route: 065
  5. ZOMETA [Suspect]
     Indication: PRODUCT USED FOR UNKNOWN INDICATION
     Route: 065
     Dates: start: 201304
  6. IBUPROFEN [Concomitant]
     Route: 065
  7. MS CONTIN [Concomitant]
     Indication: PAIN
     Route: 065
  8. MSIR [Concomitant]
     Indication: PAIN
     Dosage: AS NEEDED FOR PAIN (94HOURS)
     Route: 065
  9. PREDNISONE [Concomitant]
     Indication: PROSTATE CANCER
     Dosage: 5 MG, TWO TIMES A DAY
     Route: 048
  10. FLOMAX [Concomitant]
     Indication: DYSURIA
     Route: 065
  11. OXYBUTYNIN [Concomitant]
     Route: 065
  12. ASPIRIN [Concomitant]
     Indication: PAIN
     Route: 065
  13. DEXAMETHASONE [Concomitant]
     Dosage: TAPERING
     Route: 065
  14. CALCIUM AND VITAMIN D [Concomitant]
     Indication: PROSTATE CANCER
     Dosage: 1200 MG AND 800 IV
     Route: 065
  15. CALCIUM AND VITAMIN D [Concomitant]
     Indication: BONE LOSS
     Dosage: 1200 MG AND 800 IV
     Route: 065
  16. FOLIC ACID [Concomitant]
     Indication: ANAEMIA
     Route: 065

REACTIONS (5)
  - Deafness neurosensory [Recovering/Resolving]
  - Tinnitus [Recovering/Resolving]
  - Mass [Unknown]
  - Eyelid ptosis [Unknown]
  - Ear swelling [Recovering/Resolving]
